FAERS Safety Report 7018722-5 (Version None)
Quarter: 2010Q3

REPORT INFORMATION
  Report Type: 
  Country: None (occurrence: None)
  Receive Date: 20100928
  Receipt Date: 20100921
  Transmission Date: 20110219
  Serious: Yes (Other)
  Sender: FDA-Public Use
  Company Number: FR-AMGEN-US397390

PATIENT
  Sex: Female

DRUGS (2)
  1. ENBREL [Suspect]
     Indication: ANKYLOSING SPONDYLITIS
     Route: 058
     Dates: start: 20100101, end: 20100507
  2. GESTODENE AND ETHINYL ESTRADIOL [Interacting]
     Indication: ORAL CONTRACEPTION
     Route: 048
     Dates: end: 20100601

REACTIONS (13)
  - BLOOD PRESSURE SYSTOLIC DECREASED [None]
  - DRUG EXPOSURE BEFORE PREGNANCY [None]
  - DRUG INEFFECTIVE [None]
  - DRUG INTERACTION [None]
  - FATIGUE [None]
  - FEELING HOT [None]
  - GLARE [None]
  - INJECTION SITE ERYTHEMA [None]
  - INJECTION SITE PRURITUS [None]
  - LOSS OF CONSCIOUSNESS [None]
  - MALAISE [None]
  - METRORRHAGIA [None]
  - MIGRAINE [None]
